FAERS Safety Report 5756023-3 (Version None)
Quarter: 2008Q2

REPORT INFORMATION
  Report Type: 
  Country: None (occurrence: None)
  Receive Date: 20080602
  Receipt Date: 20080523
  Transmission Date: 20081010
  Serious: Yes (Hospitalization)
  Sender: FDA-Public Use
  Company Number: PHHY2008FR08766

PATIENT
  Sex: Female

DRUGS (5)
  1. FEMARA [Suspect]
     Indication: BREAST CANCER
     Dosage: 2.5 MG, QD
     Route: 048
     Dates: start: 20060321
  2. IRBESARTAN [Concomitant]
     Dosage: 75 MG, UNK
  3. SPIRONOLACTONE [Concomitant]
     Dosage: 50 MG, UNK
  4. KALEORID [Concomitant]
     Dosage: UNK
  5. FENOFIBRATE [Concomitant]
     Dosage: 145 MG, UNK

REACTIONS (7)
  - CATARACT [None]
  - CRYOTHERAPY [None]
  - EYE OPERATION [None]
  - LASER THERAPY [None]
  - RETINAL DETACHMENT [None]
  - VITRECTOMY [None]
  - VITREOUS HAEMORRHAGE [None]
